FAERS Safety Report 9008733 (Version 1)
Quarter: 2013Q1

REPORT INFORMATION
  Report Type: Spontaneous
  Country: CA (occurrence: CA)
  Receive Date: 20130111
  Receipt Date: 20130111
  Transmission Date: 20140127
  Serious: Yes (Other)
  Sender: FDA-Public Use
  Company Number: CA-ASTRAZENECA-2013SE00431

PATIENT
  Age: 72 Year
  Sex: Female

DRUGS (3)
  1. CRESTOR [Suspect]
     Route: 048
  2. NEXIUM [Suspect]
     Indication: GASTROOESOPHAGEAL REFLUX DISEASE
     Route: 048
     Dates: start: 201212
  3. IBERSTATIN [Concomitant]
     Route: 048

REACTIONS (5)
  - Breast cancer [Unknown]
  - Nasal congestion [Unknown]
  - Rhinorrhoea [Unknown]
  - Dry throat [Unknown]
  - Therapeutic response unexpected [Unknown]
